FAERS Safety Report 5285320-3 (Version None)
Quarter: 2007Q1

REPORT INFORMATION
  Report Type: 
  Country: None (occurrence: None)
  Receive Date: 20070328
  Receipt Date: 20070313
  Transmission Date: 20070707
  Serious: Yes (Life-Threatening)
  Sender: FDA-Public Use
  Company Number: 238185

PATIENT
  Age: 67 Year
  Sex: Female
  Weight: 52 kg

DRUGS (5)
  1. HERCEPTIN [Suspect]
     Indication: BREAST CANCER
     Dosage: 100 MG, Q2W, IV DRIP
     Route: 041
     Dates: start: 20061127, end: 20070221
  2. PACLITAXEL [Concomitant]
  3. FARESTON [Concomitant]
  4. NOLVADEX-D (TAMOXIFEN CITRATE) [Concomitant]
  5. FURTULON (DOXIFLURIDINE) [Concomitant]

REACTIONS (6)
  - ANOREXIA [None]
  - GASTRITIS EROSIVE [None]
  - INTERSTITIAL LUNG DISEASE [None]
  - LYMPHANGIOMA [None]
  - MALAISE [None]
  - RESPIRATORY FAILURE [None]
